FAERS Safety Report 5131280-5 (Version None)
Quarter: 2006Q4

REPORT INFORMATION
  Report Type: 
  Country: None (occurrence: None)
  Receive Date: 20061020
  Receipt Date: 20060919
  Transmission Date: 20070319
  Serious: Yes (Other)
  Sender: FDA-Public Use
  Company Number: JP-BAYER-200611065BYL

PATIENT
  Age: 46 Year
  Sex: Male

DRUGS (2)
  1. AVELOX [Suspect]
     Indication: SINUSITIS
     Dosage: TOTAL DAILY DOSE: 400 MG  UNIT DOSE: 400 MG
     Route: 048
     Dates: start: 20060828, end: 20060909
  2. MUCODYNE [Concomitant]
     Indication: SINUSITIS
     Dosage: TOTAL DAILY DOSE: 1500 MG  UNIT DOSE: 500 MG
     Route: 048
     Dates: start: 20050614

REACTIONS (3)
  - DRUG ERUPTION [None]
  - DYSPNOEA [None]
  - TRACHEAL STENOSIS [None]
